FAERS Safety Report 5154238-9 (Version None)
Quarter: 2006Q4

REPORT INFORMATION
  Report Type: 
  Country: None (occurrence: None)
  Receive Date: 20061114
  Receipt Date: 20061030
  Transmission Date: 20070319
  Serious: Yes (Hospitalization)
  Sender: FDA-Public Use
  Company Number: GXKR2006GB06834

PATIENT
  Age: 65 Year

DRUGS (5)
  1. ASPIRIN [Suspect]
     Indication: ANTIPLATELET THERAPY
     Dosage: 75 MG, QD, ORAL
     Route: 048
  2. IBUPROFEN [Suspect]
     Dosage: 400 MG, TID
  3. CLEXANE (ENOXAPARIN SODIUM, HEPARIN-FRATION, SODIUM SALT) [Suspect]
     Dosage: 40 MG, QD, SUBCUTANEOUS
     Route: 058
  4. CLOPIDOGREL [Suspect]
     Dosage: 75 MG, ORAL
     Route: 048
  5. PREDNISOLONE [Suspect]
     Dosage: 40 MG, QD, ORAL
     Route: 048

REACTIONS (2)
  - GASTROINTESTINAL HAEMORRHAGE [None]
  - HELICOBACTER INFECTION [None]
